FAERS Safety Report 19975814 (Version 1)
Quarter: 2021Q4

REPORT INFORMATION
  Report Type: Spontaneous
  Country: US (occurrence: US)
  Receive Date: 20211020
  Receipt Date: 20211020
  Transmission Date: 20220303
  Serious: No
  Sender: FDA-Public Use
  Company Number: US-ALLERGAN-2039288US

PATIENT
  Age: 63 Year
  Sex: Male

DRUGS (3)
  1. ZENPEP [Suspect]
     Active Substance: PANCRELIPASE AMYLASE\PANCRELIPASE LIPASE\PANCRELIPASE PROTEASE
     Dosage: PRESCRIBED 25,000 UNITS, 2 TABLETS, 3 TIMES??DAILY, SOMETIMES USED LESS BECAUSE IT WAS SO EFFECTIVE
     Route: 048
     Dates: start: 2018
  2. NORVASC [Concomitant]
     Active Substance: AMLODIPINE BESYLATE
  3. VALTREX [Concomitant]
     Active Substance: VALACYCLOVIR HYDROCHLORIDE
     Dosage: PRN

REACTIONS (3)
  - Drug ineffective [Recovered/Resolved]
  - Blood cholesterol increased [Recovered/Resolved]
  - Intentional underdose [Recovered/Resolved]
